FAERS Safety Report 11925166 (Version 1)
Quarter: 2016Q1

REPORT INFORMATION
  Report Type: Spontaneous
  Country: US (occurrence: US)
  Receive Date: 20160118
  Receipt Date: 20160118
  Transmission Date: 20160526
  Serious: Yes (Hospitalization, Other)
  Sender: FDA-Public Use
  Company Number: US-BAYER-2016-008684

PATIENT
  Age: 78 Year
  Sex: Female

DRUGS (2)
  1. CLOPIDOGREL [Interacting]
     Active Substance: CLOPIDOGREL BISULFATE
     Indication: ANTIPLATELET THERAPY
  2. ACETYLSALICYLIC ACID (} 100 MG) [Suspect]
     Active Substance: ASPIRIN
     Indication: ANTIPLATELET THERAPY

REACTIONS (7)
  - Platelet count decreased [Recovering/Resolving]
  - Skin haemorrhage [Recovering/Resolving]
  - Petechiae [Recovering/Resolving]
  - Haemorrhage subcutaneous [Recovering/Resolving]
  - Platelet disorder [Recovering/Resolving]
  - Labelled drug-drug interaction medication error [None]
  - Pulmonary alveolar haemorrhage [Recovering/Resolving]
